FAERS Safety Report 11269045 (Version 1)
Quarter: 2015Q3

REPORT INFORMATION
  Report Type: Spontaneous
  Country: ES (occurrence: ES)
  Receive Date: 20150714
  Receipt Date: 20150714
  Transmission Date: 20151125
  Serious: Yes (Other)
  Sender: FDA-Public Use
  Company Number: ES-ACCORD-032177

PATIENT
  Age: 47 Year
  Sex: Female
  Weight: 50 kg

DRUGS (1)
  1. DOCETAXEL ACCORD [Suspect]
     Active Substance: DOCETAXEL
     Indication: BREAST CANCER
     Dosage: STRENGTH: 80 MG/4ML; AUTHORIZATION/APPLICATION NUMBER: 12769002
     Route: 042
     Dates: start: 20140822, end: 20140822

REACTIONS (2)
  - Dyspnoea [Recovered/Resolved]
  - Feeling hot [Recovered/Resolved]

NARRATIVE: CASE EVENT DATE: 20140822
